FAERS Safety Report 4557812-3 (Version None)
Quarter: 2005Q1

REPORT INFORMATION
  Report Type: 
  Country: None (occurrence: None)
  Receive Date: 20050121
  Receipt Date: 20021101
  Transmission Date: 20050727
  Serious: Yes (Hospitalization, Other)
  Sender: FDA-Public Use
  Company Number: PHFR2002GB03652

PATIENT
  Age: 41 Year
  Sex: Male
  Weight: 74 kg

DRUGS (1)
  1. LAMISIL [Suspect]
     Indication: NAIL TINEA
     Dosage: 250 MG, QD
     Route: 048
     Dates: start: 20021009, end: 20021030

REACTIONS (27)
  - BONE MARROW DEPRESSION [None]
  - C-REACTIVE PROTEIN INCREASED [None]
  - CHEST X-RAY ABNORMAL [None]
  - COMPUTERISED TOMOGRAM THORAX ABNORMAL [None]
  - CONDITION AGGRAVATED [None]
  - CRACKLES LUNG [None]
  - EOSINOPHIL COUNT INCREASED [None]
  - ERYTHROPOIESIS ABNORMAL [None]
  - HAEMOGLOBIN DECREASED [None]
  - HEADACHE [None]
  - HODGKIN'S DISEASE STAGE IV [None]
  - LOWER RESPIRATORY TRACT INFECTION [None]
  - LUNG NEOPLASM [None]
  - LYMPHADENOPATHY [None]
  - MALAISE [None]
  - NASAL CONGESTION [None]
  - NEUTROPENIC SEPSIS [None]
  - PERICARDIAL EFFUSION [None]
  - PHARYNGOLARYNGEAL PAIN [None]
  - PLEURAL EFFUSION [None]
  - PNEUMONIA [None]
  - PRODUCTIVE COUGH [None]
  - PYREXIA [None]
  - Q FEVER [None]
  - RED BLOOD CELL SEDIMENTATION RATE INCREASED [None]
  - SINUSITIS [None]
  - WHITE BLOOD CELL COUNT DECREASED [None]
